FAERS Safety Report 8215158-6 (Version None)
Quarter: 2012Q1

REPORT INFORMATION
  Report Type: 
  Country: None (occurrence: None)
  Receive Date: 20120314
  Receipt Date: 20120302
  Transmission Date: 20120608
  Serious: Yes (Disabling, Other)
  Sender: FDA-Public Use
  Company Number: 2012AP000638

PATIENT
  Age: 74 Year
  Sex: Female

DRUGS (2)
  1. ALENDRONATE SODIUM [Suspect]
     Indication: OSTEOPOROSIS
     Dates: start: 20081001, end: 20090701
  2. ALENDRONATE SODIUM [Suspect]
     Indication: OSTEOPOROSIS
     Dates: start: 20030313, end: 20080801

REACTIONS (12)
  - CONDITION AGGRAVATED [None]
  - FEMUR FRACTURE [None]
  - ANXIETY [None]
  - FEAR OF DISEASE [None]
  - MULTIPLE INJURIES [None]
  - TERMINAL STATE [None]
  - QUALITY OF LIFE DECREASED [None]
  - OSTEOPOROSIS [None]
  - LOW TURNOVER OSTEOPATHY [None]
  - PAIN [None]
  - MULTIPLE FRACTURES [None]
  - BONE DISORDER [None]
